FAERS Safety Report 24977837 (Version 1)
Quarter: 2025Q1

REPORT INFORMATION
  Report Type: Spontaneous
  Country: US (occurrence: US)
  Receive Date: 20250217
  Receipt Date: 20250217
  Transmission Date: 20250408
  Serious: Yes (Other)
  Sender: NOVARTIS
  Company Number: US-002147023-NVSC2025US026349

PATIENT
  Sex: Female

DRUGS (1)
  1. CLOFAZIMINE [Suspect]
     Active Substance: CLOFAZIMINE
     Indication: Atypical mycobacterial pneumonia
     Dosage: 100 MG, QD (2 CAPS 50 MG ORAL DAILY)
     Route: 048

REACTIONS (3)
  - Dyspnoea [Unknown]
  - Lung infiltration [Unknown]
  - Off label use [Unknown]
